FAERS Safety Report 6835453-2 (Version None)
Quarter: 2010Q3

REPORT INFORMATION
  Report Type: 
  Country: None (occurrence: None)
  Receive Date: 20100713
  Receipt Date: 20100701
  Transmission Date: 20110219
  Serious: Yes (Life-Threatening)
  Sender: FDA-Public Use
  Company Number: JP-ASTRAZENECA-2010SE23866

PATIENT
  Age: 62 Year
  Sex: Male
  Weight: 45 kg

DRUGS (3)
  1. ECARD COMBINATION [Suspect]
     Indication: HYPERTENSION
     Route: 048
     Dates: start: 20100420
  2. ATELEC [Concomitant]
     Indication: HYPERTENSION
     Route: 048
     Dates: start: 20090730
  3. TENORMIN [Concomitant]
     Indication: HYPERTENSION
     Route: 048
     Dates: start: 20060930

REACTIONS (1)
  - SUBARACHNOID HAEMORRHAGE [None]
